FAERS Safety Report 9908182 (Version 1)
Quarter: 2014Q1

REPORT INFORMATION
  Report Type: Spontaneous
  Country: US (occurrence: None)
  Receive Date: 20140211
  Receipt Date: 20140211
  Transmission Date: 20141002
  Serious: Yes (Hospitalization)
  Sender: FDA-Public Use
  Company Number: 2014P1000216

PATIENT
  Age: 17 Year
  Sex: Male
  Weight: 84.28 kg

DRUGS (4)
  1. MYORISAN 20 MG (NO PREF. NAME) [Suspect]
     Indication: ACNE
     Route: 048
     Dates: start: 20130515, end: 201306
  2. MYORISAN 40 MG [Suspect]
     Indication: ACNE
     Route: 048
     Dates: start: 20130617, end: 201307
  3. UNSPECIFIED STREET DRUG [Suspect]
     Dates: start: 20131231
  4. EPI PEN [Concomitant]

REACTIONS (2)
  - Psychotic disorder [None]
  - Substance use [None]
